FAERS Safety Report 18194360 (Version 1)
Quarter: 2020Q3

REPORT INFORMATION
  Report Type: Spontaneous
  Country: US (occurrence: US)
  Receive Date: 20200825
  Receipt Date: 20200825
  Transmission Date: 20201103
  Serious: Yes (Life-Threatening, Hospitalization)
  Sender: FDA-Public Use
  Company Number: US-THE PROACTIV LLC-2089016

PATIENT
  Age: 25 Year
  Sex: Female

DRUGS (2)
  1. PROACTIV SOLUTION RENEWING CLEANSER [Suspect]
     Active Substance: BENZOYL PEROXIDE
     Indication: PRODUCT USED FOR UNKNOWN INDICATION
     Route: 061
     Dates: start: 202004, end: 202004
  2. PROACTIV REVITALIZING TONER? COSMETIC [Concomitant]
     Active Substance: COSMETICS
     Route: 061
     Dates: start: 202004, end: 202004

REACTIONS (7)
  - Lip swelling [Recovered/Resolved]
  - Paraesthesia oral [Recovered/Resolved]
  - Anaphylactic shock [Recovered/Resolved]
  - Eye swelling [Recovered/Resolved]
  - Pharyngeal swelling [Recovered/Resolved]
  - Mouth swelling [Recovered/Resolved]
  - Dyspnoea [Recovered/Resolved]

NARRATIVE: CASE EVENT DATE: 202004
